FAERS Safety Report 5858250-3 (Version None)
Quarter: 2008Q3

REPORT INFORMATION
  Report Type: 
  Country: None (occurrence: None)
  Receive Date: 20080826
  Receipt Date: 20080819
  Transmission Date: 20090109
  Serious: Yes (Hospitalization)
  Sender: FDA-Public Use
  Company Number: A0743320A

PATIENT
  Age: 22 Year
  Sex: Female

DRUGS (1)
  1. PAXIL [Suspect]
     Indication: ANXIETY
     Route: 048

REACTIONS (5)
  - INTENTIONAL SELF-INJURY [None]
  - PANIC ATTACK [None]
  - SCAR [None]
  - SUICIDE ATTEMPT [None]
  - THERMAL BURN [None]
